FAERS Safety Report 25578758 (Version 2)
Quarter: 2025Q3

REPORT INFORMATION
  Report Type: Spontaneous
  Country: US (occurrence: US)
  Receive Date: 20250718
  Receipt Date: 20250812
  Transmission Date: 20251020
  Serious: No
  Sender: PHARMING GROUP
  Company Number: US-PHARMING-PHAUS2025001033

PATIENT

DRUGS (7)
  1. RUCONEST [Suspect]
     Active Substance: CONESTAT ALFA
     Indication: Hereditary angioedema
     Route: 042
     Dates: start: 202011
  2. RUCONEST [Suspect]
     Active Substance: CONESTAT ALFA
     Route: 042
     Dates: start: 202011
  3. RUCONEST [Suspect]
     Active Substance: CONESTAT ALFA
     Route: 042
     Dates: start: 202011
  4. TAKHZYRO [Concomitant]
     Active Substance: LANADELUMAB-FLYO
     Indication: Product used for unknown indication
  5. HUMAN IMMUNOGLOBULIN G [Concomitant]
     Active Substance: HUMAN IMMUNOGLOBULIN G
     Indication: Product used for unknown indication
  6. SAJAZIR [Concomitant]
     Active Substance: ICATIBANT ACETATE
     Indication: Product used for unknown indication
  7. EPINEPHRINE [Concomitant]
     Active Substance: EPINEPHRINE
     Indication: Product used for unknown indication

REACTIONS (3)
  - Foot fracture [Unknown]
  - Intentional product use issue [Unknown]
  - Product use in unapproved indication [Unknown]
